FAERS Safety Report 4383656-1 (Version None)
Quarter: 2004Q2

REPORT INFORMATION
  Report Type: 
  Country: None (occurrence: None)
  Receive Date: 20040623
  Receipt Date: 20040312
  Transmission Date: 20050107
  Serious: Yes (Hospitalization)
  Sender: FDA-Public Use
  Company Number: 04P-144-0250473-00

PATIENT
  Age: 40 Year
  Sex: Female
  Weight: 60 kg

DRUGS (4)
  1. AMOXICILLIN AND CLAVULANATE POTASSIUM [Suspect]
     Indication: ACUTE SINUSITIS
     Route: 048
     Dates: start: 20040119, end: 20040201
  2. IBUPROFEN [Concomitant]
     Indication: HEADACHE
     Dates: start: 20040119, end: 20040213
  3. FUROSEMIDE [Concomitant]
     Dosage: 20MG PER DAY
     Dates: start: 20040204, end: 20040213
  4. COULDINA [Concomitant]

REACTIONS (13)
  - ASTHENIA [None]
  - CANDIDIASIS [None]
  - FACE OEDEMA [None]
  - GENITAL DISCHARGE [None]
  - GLOMERULONEPHRITIS ACUTE [None]
  - HYPERCHOLESTEROLAEMIA [None]
  - HYPOPROTEINAEMIA [None]
  - MALAISE [None]
  - NEPHROTIC SYNDROME [None]
  - PROTEINURIA [None]
  - PYREXIA [None]
  - TRANSAMINASES INCREASED [None]
  - WEIGHT INCREASED [None]
